FAERS Safety Report 7136468-X (Version None)
Quarter: 2010Q4

REPORT INFORMATION
  Report Type: 
  Country: None (occurrence: None)
  Receive Date: 20101206
  Receipt Date: 20050307
  Transmission Date: 20110411
  Serious: Yes (Death)
  Sender: FDA-Public Use
  Company Number: NO-ACTELION-A-CH2005-09052

PATIENT
  Age: 31 Year
  Sex: Female

DRUGS (5)
  1. BOSENTAN TABLET 62.5 MG EU [Suspect]
     Indication: PULMONARY HYPERTENSION
     Dosage: 125 MG, BID
     Route: 048
     Dates: start: 20040301, end: 20040731
  2. BOSENTAN TABLET 62.5 MG EU [Suspect]
     Dosage: 62.5 MG, BID
     Route: 048
     Dates: start: 20020615, end: 20020801
  3. BOSENTAN TABLET 62.5 MG EU [Suspect]
     Dosage: 125 MG, BID
     Route: 048
     Dates: start: 20020801, end: 20021001
  4. BOSENTAN TABLET 62.5 MG EU [Suspect]
     Dosage: 62.5 MG, BID
     Dates: start: 20021001, end: 20040101
  5. BOSENTAN TABLET 62.5 MG EU [Suspect]
     Dosage: 93.75 MG, BID
     Dates: start: 20040101, end: 20040301

REACTIONS (1)
  - DEATH [None]
